FAERS Safety Report 17337681 (Version 1)
Quarter: 2020Q1

REPORT INFORMATION
  Report Type: Report from Study
  Country: IL (occurrence: IL)
  Receive Date: 20200129
  Receipt Date: 20200129
  Transmission Date: 20200409
  Serious: Yes (Hospitalization, Other)
  Sender: FDA-Public Use
  Company Number: IL-IPSEN BIOPHARMACEUTICALS, INC.-2019-24406

PATIENT
  Age: 72 Year
  Sex: Female

DRUGS (8)
  1. SANDOSTATIN [Concomitant]
     Active Substance: OCTREOTIDE ACETATE
  2. CARDILOC [Concomitant]
     Active Substance: BISOPROLOL FUMARATE
  3. XELODA [Suspect]
     Active Substance: CAPECITABINE
     Indication: PRODUCT USED FOR UNKNOWN INDICATION
     Dates: start: 20190717
  4. TAMOXIFEN [Suspect]
     Active Substance: TAMOXIFEN
     Indication: PRODUCT USED FOR UNKNOWN INDICATION
  5. SOMATULINE [Suspect]
     Active Substance: LANREOTIDE ACETATE
     Indication: CARCINOID TUMOUR PULMONARY
     Route: 058
     Dates: start: 20190618
  6. TEMODAL [Concomitant]
     Active Substance: TEMOZOLOMIDE
     Dates: start: 20190717
  7. LOSARDEX [Concomitant]
     Active Substance: LOSARTAN POTASSIUM
  8. LIPITOR [Concomitant]
     Active Substance: ATORVASTATIN CALCIUM

REACTIONS (11)
  - Head injury [Not Recovered/Not Resolved]
  - Cognitive disorder [Unknown]
  - Fall [Not Recovered/Not Resolved]
  - Brain oedema [Not Recovered/Not Resolved]
  - Oedema peripheral [Not Recovered/Not Resolved]
  - Post procedural haemorrhage [Unknown]
  - Neoplasm progression [Unknown]
  - Diarrhoea [Recovered/Resolved]
  - Vein disorder [Unknown]
  - Product dose omission [Unknown]
  - Haemorrhage [Unknown]

NARRATIVE: CASE EVENT DATE: 2019
